FAERS Safety Report 5199561-7 (Version None)
Quarter: 2007Q1

REPORT INFORMATION
  Report Type: 
  Country: None (occurrence: None)
  Receive Date: 20070105
  Receipt Date: 20061221
  Transmission Date: 20070707
  Serious: Yes (Hospitalization, Other)
  Sender: FDA-Public Use
  Company Number: US-RB-004623-06

PATIENT
  Sex: Female

DRUGS (6)
  1. SUBUTEX [Suspect]
     Dosage: WAS BEING TAPERED DUE TO PATIENTS DESIRE TO GET PREGNANT
     Route: 060
     Dates: start: 20060101
  2. SUBUTEX [Suspect]
     Route: 060
     Dates: start: 20061101
  3. SUBOXONE [Suspect]
     Indication: DRUG USE FOR UNKNOWN INDICATION
     Dosage: UNKNOWN
     Dates: start: 20041201, end: 20050201
  4. ALBUTEROL [Concomitant]
  5. PRENATAL VITAMINS [Concomitant]
     Indication: PREGNANCY
  6. BIRTH CONTROL PILL [Concomitant]

REACTIONS (3)
  - ABORTION INDUCED [None]
  - DRUG EXPOSURE DURING PREGNANCY [None]
  - FOETAL CHROMOSOME ABNORMALITY [None]
